FAERS Safety Report 21772969 (Version 2)
Quarter: 2022Q4

REPORT INFORMATION
  Report Type: Spontaneous
  Country: EE (occurrence: EE)
  Receive Date: 20221223
  Receipt Date: 20221226
  Transmission Date: 20230113
  Serious: Yes (Death, Other)
  Sender: FDA-Public Use
  Company Number: EE-ALXN-A202215901

PATIENT

DRUGS (1)
  1. SOLIRIS [Suspect]
     Active Substance: ECULIZUMAB
     Indication: Atypical haemolytic uraemic syndrome
     Dosage: UNK
     Route: 065

REACTIONS (1)
  - Death [Fatal]
